FAERS Safety Report 6380520-3 (Version None)
Quarter: 2009Q3

REPORT INFORMATION
  Report Type: 
  Country: None (occurrence: None)
  Receive Date: 20090923
  Receipt Date: 20090910
  Transmission Date: 20100115
  Serious: Yes (Hospitalization)
  Sender: FDA-Public Use
  Company Number: 8052210

PATIENT
  Age: 24 Year
  Sex: Female

DRUGS (3)
  1. KEPPRA [Suspect]
     Indication: EPILEPSY
     Dosage: PO
     Route: 048
     Dates: start: 20050824
  2. DEPAKINE  CHRONO [Suspect]
     Indication: EPILEPSY
     Dosage: PO
     Route: 048
     Dates: start: 20051226
  3. VALPROIC ACID [Suspect]
     Indication: EPILEPSY
     Dosage: PO
     Route: 048

REACTIONS (2)
  - CUTANEOUS LUPUS ERYTHEMATOSUS [None]
  - PRODUCT SUBSTITUTION ISSUE [None]
